FAERS Safety Report 13119701 (Version 1)
Quarter: 2017Q1

REPORT INFORMATION
  Report Type: Spontaneous
  Country: IE (occurrence: IE)
  Receive Date: 20170117
  Receipt Date: 20170117
  Transmission Date: 20170428
  Serious: Yes (Other)
  Sender: FDA-Public Use
  Company Number: IE-BAXTER-2016BAX063537

PATIENT
  Age: 36 Year
  Sex: Male
  Weight: 59 kg

DRUGS (4)
  1. SODIUM CHLORIDE 0.9% INTRAVENOUS INFUSION BP [Suspect]
     Active Substance: SODIUM CHLORIDE
     Dosage: FLUSH PRE AND POST INFUSION
     Route: 042
  2. FLOXAPEN [Suspect]
     Active Substance: FLUCLOXACILLIN
     Indication: STAPHYLOCOCCAL OSTEOMYELITIS
     Dosage: POWDER FOR SOLUTION FOR INJECTION OR INFUSION; APPROXIMATE INFUSION TIME 30 MINUTES
     Route: 042
     Dates: start: 20161116, end: 20161212
  3. WATER FOR INJECTION [Suspect]
     Active Substance: WATER
     Indication: MEDICATION DILUTION
     Dosage: APPROXIMATE INFUSION TIME 30 MINUTES
     Route: 042
     Dates: start: 20161116, end: 20161212
  4. SODIUM CHLORIDE 0.9% INTRAVENOUS INFUSION BP [Suspect]
     Active Substance: SODIUM CHLORIDE
     Indication: MEDICATION DILUTION
     Dosage: APPROXIMATE INFUSION TIME 30 MINUTES
     Route: 042
     Dates: start: 20161116, end: 20161212

REACTIONS (2)
  - Pruritus [Recovered/Resolved]
  - Rash [Recovered/Resolved]

NARRATIVE: CASE EVENT DATE: 20161211
